FAERS Safety Report 15283981 (Version 6)
Quarter: 2018Q4

REPORT INFORMATION
  Report Type: Spontaneous
  Country: IL (occurrence: IL)
  Receive Date: 20180816
  Receipt Date: 20181210
  Transmission Date: 20190204
  Serious: Yes (Hospitalization)
  Sender: FDA-Public Use
  Company Number: IL-HORIZON-KRY-0247-2018

PATIENT
  Age: 51 Year
  Sex: Male

DRUGS (4)
  1. HYDROCORTISONE. [Concomitant]
     Active Substance: HYDROCORTISONE
     Indication: PREMEDICATION
     Route: 042
  2. COLCHICINE. [Concomitant]
     Active Substance: COLCHICINE
  3. KRYSTEXXA [Suspect]
     Active Substance: PEGLOTICASE
     Indication: GOUT
     Route: 042
     Dates: start: 20180725, end: 20180725
  4. FEXOFENADINE [Concomitant]
     Active Substance: FEXOFENADINE\FEXOFENADINE HYDROCHLORIDE
     Indication: PREMEDICATION
     Route: 048

REACTIONS (13)
  - Musculoskeletal pain [Recovering/Resolving]
  - Blood pressure increased [Recovering/Resolving]
  - Therapeutic response decreased [Unknown]
  - Blood glucose increased [Unknown]
  - Oedema [Unknown]
  - Hepatosplenomegaly [Unknown]
  - Cholelithiasis [Unknown]
  - Muscular weakness [Recovering/Resolving]
  - Thyroid mass [Unknown]
  - Atelectasis [Unknown]
  - Troponin increased [Unknown]
  - C-reactive protein increased [Unknown]
  - Neutrophil count increased [Unknown]

NARRATIVE: CASE EVENT DATE: 20180808
